FAERS Safety Report 9527868 (Version 2)
Quarter: 2014Q2

REPORT INFORMATION
  Report Type: Spontaneous
  Country: CA (occurrence: None)
  Receive Date: 20130913
  Receipt Date: 20140428
  Transmission Date: 20141212
  Serious: Yes (Hospitalization, Other)
  Sender: FDA-Public Use
  Company Number: CA-012947

PATIENT
  Age: 83 Year
  Sex: Male
  Weight: 88.91 kg

DRUGS (9)
  1. FIRMAGON [Suspect]
     Indication: PROSTATE CANCER
     Dosage: (80 MG 1X/4 WEEKS SUBCUTANEOUS)
     Route: 058
     Dates: start: 20120119, end: 20120604
  2. ANTI-ANDROGENS [Concomitant]
  3. DILAUDID [Concomitant]
  4. METFORMIN [Concomitant]
  5. ALLOPURINOL [Concomitant]
  6. ANTI-ANDROGENS [Concomitant]
  7. PREDNISOLONE [Concomitant]
  8. ZANTAC [Concomitant]
  9. CALTRATE PLUS [Concomitant]

REACTIONS (3)
  - Bone neoplasm [None]
  - Haematuria [None]
  - Pain [None]
